FAERS Safety Report 10354732 (Version 1)
Quarter: 2014Q3

REPORT INFORMATION
  Report Type: Spontaneous
  Country: FR (occurrence: FR)
  Receive Date: 20140731
  Receipt Date: 20140731
  Transmission Date: 20150326
  Serious: Yes (Hospitalization)
  Sender: FDA-Public Use
  Company Number: PHHY2014FR091818

PATIENT
  Age: 10 Year
  Sex: Male
  Weight: 27 kg

DRUGS (4)
  1. RITALIN [Suspect]
     Active Substance: METHYLPHENIDATE HYDROCHLORIDE
     Dosage: UNK UKN, UNK
     Route: 048
     Dates: start: 201209, end: 20130907
  2. AMOXICILLIN. [Suspect]
     Active Substance: AMOXICILLIN
     Dosage: UNK UKN, UNK
     Dates: start: 20130902, end: 20130907
  3. JOSACINE [Suspect]
     Active Substance: JOSAMYCIN
     Dosage: UNK UKN, UNK
     Route: 048
     Dates: start: 20130905
  4. PARACETAMOL [Suspect]
     Active Substance: ACETAMINOPHEN
     Dosage: UNK UKN, UNK
     Route: 048
     Dates: start: 201309

REACTIONS (1)
  - Erythema multiforme [Recovered/Resolved]

NARRATIVE: CASE EVENT DATE: 201309
